FAERS Safety Report 6229969-X (Version None)
Quarter: 2009Q2

REPORT INFORMATION
  Report Type: 
  Country: None (occurrence: None)
  Receive Date: 20090615
  Receipt Date: 20090608
  Transmission Date: 20091009
  Serious: Yes (Other)
  Sender: FDA-Public Use
  Company Number: TR-BRISTOL-MYERS SQUIBB COMPANY-14653737

PATIENT
  Age: 57 Year
  Sex: Female

DRUGS (8)
  1. AMPHOTERICIN B [Suspect]
     Indication: PYREXIA
  2. AMIKACIN SULFATE [Suspect]
  3. CEFEPIME [Suspect]
  4. CYTARABINE [Suspect]
     Indication: ACUTE MYELOID LEUKAEMIA
     Dosage: TAKEN 2G/M2 ON DAYS1,3,5
  5. IDARUBICIN HCL [Suspect]
     Indication: ACUTE MYELOID LEUKAEMIA
  6. AMPHOTERICIN B [Suspect]
     Indication: PYREXIA
  7. MEROPENEM [Suspect]
  8. TEICOPLANIN [Suspect]
     Dosage: 1 DF = 400 MG/G (SIC)

REACTIONS (1)
  - HEPATOTOXICITY [None]
